FAERS Safety Report 8331506-0 (Version None)
Quarter: 2012Q2

REPORT INFORMATION
  Report Type: 
  Country: None (occurrence: None)
  Receive Date: 20120502
  Receipt Date: 20120418
  Transmission Date: 20120825
  Serious: No
  Sender: FDA-Public Use
  Company Number: US-AMGEN-USASP2011018517

PATIENT
  Age: 79 Year
  Sex: Female

DRUGS (2)
  1. ENBREL [Suspect]
     Indication: FIBROMYALGIA
  2. ENBREL [Suspect]
     Indication: RHEUMATOID ARTHRITIS
     Dosage: 50 MG, QWK
     Dates: start: 20060301, end: 20110324

REACTIONS (5)
  - GRIP STRENGTH DECREASED [None]
  - PAIN [None]
  - VIRAL INFECTION [None]
  - DRUG INEFFECTIVE [None]
  - ARTHRALGIA [None]
